FAERS Safety Report 4722941-8 (Version None)
Quarter: 2005Q3

REPORT INFORMATION
  Report Type: 
  Country: None (occurrence: None)
  Receive Date: 20050719
  Receipt Date: 20040902
  Transmission Date: 20060218
  Serious: Yes (Other)
  Sender: FDA-Public Use
  Company Number: 2004231207US

PATIENT
  Sex: Male

DRUGS (24)
  1. CELEBREX [Suspect]
     Dosage: 200 MG, QD, ORAL
     Route: 048
     Dates: start: 20000601, end: 20020301
  2. LOPID [Concomitant]
  3. VICODIN [Concomitant]
  4. SOMA [Concomitant]
  5. XANAX [Concomitant]
  6. OXYCONTIN [Concomitant]
  7. TRAZODONE HCL [Concomitant]
  8. ZESTRIL [Concomitant]
  9. BACLOFEN [Concomitant]
  10. HYDRALAZINE HCL [Concomitant]
  11. DOXEPIN HCL [Concomitant]
  12. QUININE SULFATE [Concomitant]
  13. FOLIC ACID [Concomitant]
  14. PRILOSEC [Concomitant]
  15. COLACE (DOCUSATE SODIUM) [Concomitant]
  16. TRICOR [Concomitant]
  17. PLAVIX [Concomitant]
  18. ASPIRIN ENTERIC COATED K.P. [Concomitant]
  19. ZYBAN [Concomitant]
  20. FLORINEF [Concomitant]
  21. NEXIUM [Concomitant]
  22. CLONOPIN [Concomitant]
  23. WELCHOL [Concomitant]
  24. ASPIRIN [Concomitant]

REACTIONS (1)
  - CHEST PAIN [None]
